FAERS Safety Report 18231203 (Version 1)
Quarter: 2020Q3

REPORT INFORMATION
  Report Type: Spontaneous
  Country: US (occurrence: US)
  Receive Date: 20200904
  Receipt Date: 20200904
  Transmission Date: 20201103
  Serious: No
  Sender: FDA-Public Use
  Company Number: US-SA-2020SA239129

PATIENT

DRUGS (6)
  1. DUPIXENT [Suspect]
     Active Substance: DUPILUMAB
     Indication: DERMATITIS ATOPIC
  2. DUPIXENT [Suspect]
     Active Substance: DUPILUMAB
     Indication: PSORIASIS
     Dosage: 300 MG, QOW
     Route: 058
     Dates: start: 20200612, end: 20200814
  3. TRIAMTERENE. [Concomitant]
     Active Substance: TRIAMTERENE
  4. VITAMIN D [VITAMIN D NOS] [Concomitant]
     Active Substance: VITAMIN D NOS
  5. ALENDRONATE SODIUM. [Concomitant]
     Active Substance: ALENDRONATE SODIUM
  6. HUMIRA [Concomitant]
     Active Substance: ADALIMUMAB

REACTIONS (4)
  - Skin lesion [Not Recovered/Not Resolved]
  - Product use in unapproved indication [Unknown]
  - Product dose omission issue [Not Recovered/Not Resolved]
  - Condition aggravated [Not Recovered/Not Resolved]

NARRATIVE: CASE EVENT DATE: 20200612
